FAERS Safety Report 5762393-2 (Version None)
Quarter: 2008Q2

REPORT INFORMATION
  Report Type: 
  Country: None (occurrence: None)
  Receive Date: 20080527
  Receipt Date: 20080108
  Transmission Date: 20081010
  Serious: Yes (Other)
  Sender: FDA-Public Use
  Company Number: 253067

PATIENT
  Age: 56 Year
  Sex: Female
  Weight: 96.1 kg

DRUGS (5)
  1. HERCEPTIN [Suspect]
     Indication: BREAST CANCER
     Dosage: 200 MG, 1/WEEK, INTRAVENOUS
     Route: 042
     Dates: start: 20070912
  2. TYLENOL (CAPLET) [Concomitant]
  3. SOLU-MEDROL [Concomitant]
  4. TAGAMET [Concomitant]
  5. BENADRYL [Concomitant]

REACTIONS (3)
  - FLUSHING [None]
  - NAUSEA [None]
  - THROAT TIGHTNESS [None]
